FAERS Safety Report 8127783-1 (Version None)
Quarter: 2011Q4

REPORT INFORMATION
  Report Type: 
  Country: None (occurrence: None)
  Receive Date: 20111228
  Receipt Date: 20110113
  Transmission Date: 20120403
  Serious: Yes (Other)
  Sender: FDA-Public Use
  Company Number: AUR-APL-2010-02197

PATIENT
  Age: 60 Year
  Sex: Female
  Weight: 61.68 kg

DRUGS (10)
  1. AMOXICILLIN [Suspect]
     Indication: SINUSITIS
     Dosage: 1500 MG (500 MG,3 IN 1 D)
     Dates: end: 20100101
  2. LIPITOR [Suspect]
     Indication: BLOOD CHOLESTEROL INCREASED
     Dosage: 10 MG (10 MG,1 IN 1 D),ORAL
     Route: 048
     Dates: start: 20091001, end: 20100601
  3. MULTIVITAMIN [Concomitant]
  4. CALTRATE (CALCIUM CARBONATE) [Concomitant]
  5. BACTRIM [Suspect]
     Indication: SINUSITIS
     Dates: start: 20100101, end: 20100401
  6. ASPIRIN [Concomitant]
  7. VIVELLE [Concomitant]
  8. MOTRIN [Suspect]
     Indication: BACK PAIN
     Dosage: 800 MG (800 MG,1 IN 1 D),ORAL
     Route: 048
     Dates: end: 20100601
  9. ADVIL COLD AND SINUS [Suspect]
     Indication: SINUSITIS
     Dosage: 200/30 MG (1 IN 1 D),ORAL
     Route: 048
     Dates: start: 20100501, end: 20100701
  10. FISH OIL (FISH OIL) [Concomitant]

REACTIONS (6)
  - BLOOD CHOLESTEROL INCREASED [None]
  - HYPERSENSITIVITY [None]
  - URTICARIA [None]
  - RASH GENERALISED [None]
  - RASH MORBILLIFORM [None]
  - SINUSITIS [None]
